FAERS Safety Report 4683214-5 (Version None)
Quarter: 2005Q2

REPORT INFORMATION
  Report Type: 
  Country: None (occurrence: None)
  Receive Date: 20050602
  Receipt Date: 20050131
  Transmission Date: 20051028
  Serious: No
  Sender: FDA-Public Use
  Company Number: USA050289565

PATIENT
  Age: 34 Year
  Sex: Female
  Weight: 77 kg

DRUGS (1)
  1. CYMBALTA [Suspect]
     Indication: DEPRESSION
     Dosage: 30 MG DAY
     Dates: start: 20040801, end: 20050101

REACTIONS (11)
  - ANGER [None]
  - CRYING [None]
  - DEPRESSION [None]
  - DISTURBANCE IN ATTENTION [None]
  - DIZZINESS [None]
  - HYPERHIDROSIS [None]
  - LABYRINTHITIS [None]
  - MOOD SWINGS [None]
  - MOTION SICKNESS [None]
  - NAUSEA [None]
  - PARAESTHESIA [None]
